FAERS Safety Report 9027103 (Version 1)
Quarter: 2013Q1

REPORT INFORMATION
  Report Type: Spontaneous
  Country: US (occurrence: US)
  Receive Date: 20130123
  Receipt Date: 20130123
  Transmission Date: 20140127
  Serious: No
  Sender: FDA-Public Use
  Company Number: US-TARO-2012P1022431

PATIENT
  Age: 65 Year
  Sex: Male
  Weight: 74.84 kg

DRUGS (1)
  1. ECONAZOLE NITRATE [Suspect]
     Indication: FUNGAL INFECTION
     Route: 061
     Dates: start: 20120506, end: 20120507

REACTIONS (2)
  - Fungal infection [Recovering/Resolving]
  - Drug ineffective [Unknown]
